FAERS Safety Report 25855834 (Version 1)
Quarter: 2025Q3

REPORT INFORMATION
  Report Type: Spontaneous
  Country: US (occurrence: US)
  Receive Date: 20250928
  Receipt Date: 20250928
  Transmission Date: 20251020
  Serious: No
  Sender: SANOFI AVENTIS
  Company Number: US-SA-2025SA287049

PATIENT
  Age: 34 Year
  Sex: Female

DRUGS (1)
  1. DUPIXENT [Suspect]
     Active Substance: DUPILUMAB
     Indication: Neurodermatitis
     Dosage: 300 MG, QOW
     Route: 058

REACTIONS (8)
  - Throat tightness [Unknown]
  - Neurodermatitis [Unknown]
  - Skin fissures [Unknown]
  - Skin haemorrhage [Unknown]
  - Urticaria [Unknown]
  - Rash pruritic [Unknown]
  - Product dose omission issue [Unknown]
  - Rebound effect [Unknown]
